FAERS Safety Report 15434802 (Version 1)
Quarter: 2018Q3

REPORT INFORMATION
  Report Type: Spontaneous
  Country: US (occurrence: US)
  Receive Date: 20180922
  Receipt Date: 20180922
  Transmission Date: 20181010
  Serious: Yes (Life-Threatening, Hospitalization, Disabling)
  Sender: FDA-Public Use
  Company Number: None

PATIENT
  Age: 34 Year
  Sex: Female
  Weight: 57.6 kg

DRUGS (1)
  1. ZOFRAN [Suspect]
     Active Substance: ONDANSETRON HYDROCHLORIDE
     Indication: NAUSEA
     Dosage: ?          OTHER FREQUENCY:IV;?INTRAVENOUS (NOT OTHERWISE SPECIFIED)?
     Route: 042

REACTIONS (2)
  - Heart rate decreased [None]
  - Arrhythmia [None]

NARRATIVE: CASE EVENT DATE: 20180919
